FAERS Safety Report 8188470-7 (Version None)
Quarter: 2012Q1

REPORT INFORMATION
  Report Type: 
  Country: None (occurrence: None)
  Receive Date: 20120306
  Receipt Date: 20120228
  Transmission Date: 20120608
  Serious: Yes (Other)
  Sender: FDA-Public Use
  Company Number: PHHY2012BR018602

PATIENT
  Age: 75 Year
  Sex: Female

DRUGS (1)
  1. DIOVAN HCT [Suspect]
     Indication: HYPERTENSION
     Dosage: 1 DF (160/12.5 MG), DAILY

REACTIONS (8)
  - BACK PAIN [None]
  - WOUND [None]
  - ANXIETY [None]
  - ATRIAL FIBRILLATION [None]
  - OSTEOARTHRITIS [None]
  - CONDITION AGGRAVATED [None]
  - VARICOSE VEIN [None]
  - HYPOTHYROIDISM [None]
